FAERS Safety Report 4768185-5 (Version None)
Quarter: 2005Q3

REPORT INFORMATION
  Report Type: 
  Country: None (occurrence: None)
  Receive Date: 20050908
  Receipt Date: 20050118
  Transmission Date: 20060218
  Serious: Yes (Hospitalization)
  Sender: FDA-Public Use
  Company Number: A03200500175

PATIENT
  Age: 64 Year
  Sex: Female
  Weight: 111.5849 kg

DRUGS (4)
  1. ELOXATIN [Suspect]
     Indication: COLON CANCER
     Dosage: 190 MG OTHER - INTRAVENOUS NOS
     Route: 042
     Dates: start: 20050118, end: 20050118
  2. DOLASETRON MESILATE [Concomitant]
  3. FLUOROURACIL [Concomitant]
  4. LEUCOVORIN [Concomitant]

REACTIONS (4)
  - DIARRHOEA [None]
  - INJECTION SITE DISCOMFORT [None]
  - INJECTION SITE IRRITATION [None]
  - VOMITING [None]
